FAERS Safety Report 11704103 (Version 1)
Quarter: 2015Q4

REPORT INFORMATION
  Report Type: Spontaneous
  Country: US (occurrence: US)
  Receive Date: 20151106
  Receipt Date: 20151106
  Transmission Date: 20160304
  Serious: Yes (Other)
  Sender: FDA-Public Use
  Company Number: US-SUN PHARMACEUTICAL INDUSTRIES LTD-2015US-105380

PATIENT
  Age: 37 Year
  Sex: Female

DRUGS (1)
  1. COTRIMOXAZOLE [Suspect]
     Active Substance: SULFAMETHOXAZOLE\TRIMETHOPRIM
     Indication: PNEUMONIA
     Dosage: UNK
     Route: 065

REACTIONS (8)
  - Dizziness [Unknown]
  - Clostridium difficile infection [Unknown]
  - Multi-organ failure [Recovered/Resolved]
  - Acrodynia [Unknown]
  - Allodynia [Unknown]
  - Shock [Recovered/Resolved]
  - Fatigue [Unknown]
  - Diarrhoea [Unknown]
